FAERS Safety Report 9310644 (Version 1)
Quarter: 2013Q2

REPORT INFORMATION
  Report Type: Spontaneous
  Country: SG (occurrence: SG)
  Receive Date: 20130527
  Receipt Date: 20130527
  Transmission Date: 20140414
  Serious: Yes (Other)
  Sender: FDA-Public Use
  Company Number: SG-009507513-1305GBR009995

PATIENT
  Age: 62 Year
  Sex: Female

DRUGS (1)
  1. CLARINASE [Suspect]
     Route: 048

REACTIONS (1)
  - Rash pruritic [Unknown]
